FAERS Safety Report 9015171 (Version 1)
Quarter: 2013Q1

REPORT INFORMATION
  Report Type: Spontaneous
  Country: US (occurrence: None)
  Receive Date: 20130103
  Receipt Date: 20130103
  Transmission Date: 20140127
  Serious: Yes (Hospitalization)
  Sender: FDA-Public Use
  Company Number: IMP_06128_2012

PATIENT
  Age: 50 Year
  Sex: Female

DRUGS (13)
  1. METFORMIN [Suspect]
     Indication: PRODUCT USED FOR UNKNOWN INDICATION
     Dosage: ([DF])
  2. CELECOXIB [Suspect]
     Indication: ARTHRALGIA
     Dosage: (DF)
  3. CANDESARTAN [Suspect]
     Dosage: (DF)
  4. THIAZIDE [Suspect]
     Dosage: (DF)
  5. ANGIOTENSIN II ANTAGONISTS [Suspect]
     Dosage: (DF)
  6. L-THYROXINE /00068001/ (UNKNOWN) [Concomitant]
  7. ACETAMINOPHEN W/CODEINE (UNKNOWN) [Concomitant]
  8. ASPIRIN (UNKNOWN) [Concomitant]
  9. SIMVASTATIN (UNKNOWN) [Concomitant]
  10. PREGABALIN (UNKNOWN) [Concomitant]
  11. TIZANIDINE (UNKNOWN) [Concomitant]
  12. OMEPRAZOLE (UNKNOWN) [Concomitant]
  13. ARIPIPRAZOLE (UNKNOWN) [Concomitant]

REACTIONS (11)
  - Nausea [None]
  - Vomiting [None]
  - Abdominal pain upper [None]
  - Asthenia [None]
  - Occult blood positive [None]
  - Sinus tachycardia [None]
  - Electrocardiogram QRS complex prolonged [None]
  - Ventricular extrasystoles [None]
  - Renal failure acute [None]
  - Pancreatitis [None]
  - Lactic acidosis [None]
